FAERS Safety Report 6013213-2 (Version None)
Quarter: 2008Q4

REPORT INFORMATION
  Report Type: 
  Country: None (occurrence: None)
  Receive Date: 20081218
  Receipt Date: 20081218
  Transmission Date: 20090506
  Serious: Yes (Life-Threatening, Hospitalization, Other)
  Sender: FDA-Public Use
  Company Number: None

PATIENT
  Age: 34 Year
  Sex: Male
  Weight: 85.2762 kg

DRUGS (1)
  1. CHANTIX [Suspect]
     Indication: SMOKING CESSATION THERAPY
     Dosage: 1 TWICE A DAY PO
     Route: 048
     Dates: start: 20081020, end: 20081217

REACTIONS (6)
  - AGGRESSION [None]
  - IMPRISONMENT [None]
  - MOOD SWINGS [None]
  - NIGHTMARE [None]
  - PANIC ATTACK [None]
  - SPOUSAL ABUSE [None]
